FAERS Safety Report 24972810 (Version 1)
Quarter: 2025Q1

REPORT INFORMATION
  Report Type: Spontaneous
  Country: ES (occurrence: ES)
  Receive Date: 20250215
  Receipt Date: 20250215
  Transmission Date: 20250408
  Serious: Yes (Hospitalization, Other)
  Sender: CELLTRION
  Company Number: ES-ROCHE-3534770

PATIENT

DRUGS (20)
  1. BEVACIZUMAB [Suspect]
     Active Substance: BEVACIZUMAB
     Indication: Hepatocellular carcinoma
     Route: 065
     Dates: start: 20230310
  2. ATEZOLIZUMAB [Suspect]
     Active Substance: ATEZOLIZUMAB
     Indication: Hepatocellular carcinoma
     Route: 041
     Dates: start: 20230310
  3. ACETAMINOPHEN [Concomitant]
     Active Substance: ACETAMINOPHEN
     Dates: start: 20181001
  4. AVARIC [Concomitant]
     Dates: start: 20230306
  5. NALOXONE HYDROCHLORIDE\OXYCODONE HYDROCHLORIDE [Concomitant]
     Active Substance: NALOXONE HYDROCHLORIDE\OXYCODONE HYDROCHLORIDE
     Dates: start: 20230303
  6. ALPRAZOLAM [Concomitant]
     Active Substance: ALPRAZOLAM
     Dates: start: 20200416
  7. ATROVENT [Concomitant]
     Active Substance: IPRATROPIUM BROMIDE
     Dates: start: 20200709
  8. LACTULOSE [Concomitant]
     Active Substance: LACTULOSE
     Dates: start: 20230310
  9. CEFUROXIME [Concomitant]
     Active Substance: CEFUROXIME
     Dates: start: 20230512
  10. DUPHALAC BULK [Concomitant]
     Dates: start: 20230915
  11. LOSARTAN [Concomitant]
     Active Substance: LOSARTAN
     Dates: start: 20231027
  12. HYDROCHLOROTHIAZIDE [Concomitant]
     Active Substance: HYDROCHLOROTHIAZIDE
     Dates: start: 20231027
  13. PREDNISONE [Concomitant]
     Active Substance: PREDNISONE
     Dates: start: 20240111, end: 202403
  14. CYMBALTA [Concomitant]
     Active Substance: DULOXETINE HYDROCHLORIDE
     Dates: start: 20240126
  15. UROCRAN [Concomitant]
     Dates: start: 20240129
  16. DESFESOTERODINE [Concomitant]
     Active Substance: DESFESOTERODINE
     Dates: start: 20240129
  17. CARVEDILOL [Concomitant]
     Active Substance: CARVEDILOL
     Dates: start: 20240216, end: 20240223
  18. ENOXAPARIN [Concomitant]
     Active Substance: ENOXAPARIN
     Dates: start: 20240305, end: 20240312
  19. DEXTROSE [Concomitant]
     Active Substance: DEXTROSE MONOHYDRATE
     Dates: start: 20240304, end: 20240305
  20. INSULIN NOS [Concomitant]
     Active Substance: INSULIN NOS
     Dates: start: 20240304, end: 20240307

REACTIONS (2)
  - Upper gastrointestinal haemorrhage [Recovered/Resolved]
  - Intentional product use issue [Unknown]

NARRATIVE: CASE EVENT DATE: 20240304
